FAERS Safety Report 24713390 (Version 1)
Quarter: 2024Q4

REPORT INFORMATION
  Report Type: Spontaneous
  Country: US (occurrence: US)
  Receive Date: 20241209
  Receipt Date: 20241209
  Transmission Date: 20250115
  Serious: No
  Sender: REGENERON
  Company Number: US-REGENERON PHARMACEUTICALS, INC.-2024-037584

PATIENT
  Sex: Female

DRUGS (5)
  1. EYLEA [Suspect]
     Active Substance: AFLIBERCEPT
     Indication: Macular oedema
     Dosage: 2 MG, EVERY 6 WEEKS; INTO RIGHT EYE, FORMULATION: PFS GERRESHEIMER
     Dates: start: 2023, end: 2023
  2. EYLEA [Suspect]
     Active Substance: AFLIBERCEPT
     Indication: Retinal vein occlusion
     Dosage: 2 MG, EVERY 6 WEEKS, SECOND DOSE; INTO RIGHT EYE, FORMULATION: PFS GERRESHEIMER
     Dates: start: 20240226
  3. NEXIUM [Concomitant]
     Active Substance: ESOMEPRAZOLE MAGNESIUM
     Indication: Product used for unknown indication
  4. CELEBREX [Concomitant]
     Active Substance: CELECOXIB
     Indication: Arthritis
     Dosage: UNK, OCCASIONALLY AS NEEDED
  5. ESTROGENS [Concomitant]
     Active Substance: ESTROGENS
     Indication: Product used for unknown indication
     Dosage: UNK, VAGINAL CREAM
     Route: 067

REACTIONS (2)
  - Eye swelling [Unknown]
  - Wrong technique in product usage process [Unknown]
